FAERS Safety Report 12087960 (Version 1)
Quarter: 2016Q1

REPORT INFORMATION
  Report Type: Spontaneous
  Country: US (occurrence: US)
  Receive Date: 20160217
  Receipt Date: 20160217
  Transmission Date: 20160526
  Serious: No
  Sender: FDA-Public Use
  Company Number: US-ALLERGAN-1523483US

PATIENT
  Age: 34 Year
  Sex: Male
  Weight: 85.26 kg

DRUGS (2)
  1. LIDOCAINE W/PRILOCAINE [Concomitant]
     Indication: LOCAL ANAESTHESIA
     Dosage: UNK UNK, SINGLE
     Route: 061
     Dates: start: 20150831, end: 20150831
  2. KYBELLA [Suspect]
     Active Substance: DEOXYCHOLIC ACID
     Indication: FAT TISSUE INCREASED
     Dosage: 4 ML, SINGLE
     Route: 058
     Dates: start: 20150831, end: 20150831

REACTIONS (4)
  - Drug ineffective [Unknown]
  - Alopecia [Not Recovered/Not Resolved]
  - Injection site nodule [Not Recovered/Not Resolved]
  - Injection site swelling [Not Recovered/Not Resolved]

NARRATIVE: CASE EVENT DATE: 20150831
